FAERS Safety Report 4652439-7 (Version None)
Quarter: 2005Q2

REPORT INFORMATION
  Report Type: 
  Country: None (occurrence: None)
  Receive Date: 20050502
  Receipt Date: 20050421
  Transmission Date: 20051028
  Serious: Yes (Other)
  Sender: FDA-Public Use
  Company Number: 2005063056

PATIENT
  Age: 42 Year
  Sex: Female
  Weight: 56.6996 kg

DRUGS (1)
  1. BENADRYL [Suspect]
     Indication: FOOD ALLERGY
     Dosage: ULTRATABS EVERT 4 HOURS PRN, ORAL
     Route: 048
     Dates: start: 20050415, end: 20050420

REACTIONS (1)
  - HYPERSENSITIVITY [None]
